FAERS Safety Report 5971566-5 (Version None)
Quarter: 2008Q4

REPORT INFORMATION
  Report Type: 
  Country: None (occurrence: None)
  Receive Date: 20081201
  Receipt Date: 20081125
  Transmission Date: 20090506
  Serious: Yes (Life-Threatening, Hospitalization)
  Sender: FDA-Public Use
  Company Number: MX-JNJFOC-20081106116

PATIENT
  Sex: Male
  Weight: 80 kg

DRUGS (7)
  1. TMC114 [Suspect]
  2. TMC114 [Suspect]
     Indication: HIV INFECTION
  3. RITONAVIR [Suspect]
     Indication: HIV INFECTION
     Route: 048
  4. TRUVADA [Suspect]
     Indication: HIV INFECTION
     Route: 048
  5. PHARMATON [Concomitant]
  6. GLUCOSAMINE SULPHATE [Concomitant]
  7. ALUMINUM HYDROXIDE GEL [Concomitant]
     Indication: DYSPEPSIA

REACTIONS (1)
  - DERMATITIS BULLOUS [None]
